FAERS Safety Report 24941310 (Version 1)
Quarter: 2025Q1

REPORT INFORMATION
  Report Type: Report from Study
  Country: US (occurrence: US)
  Receive Date: 20250207
  Receipt Date: 20250207
  Transmission Date: 20250409
  Serious: Yes (Other)
  Sender: RANBAXY
  Company Number: US-SUN PHARMACEUTICAL INDUSTRIES LTD-2025R1-492962

PATIENT
  Age: 6 Decade
  Sex: Male

DRUGS (1)
  1. TESTOSTERONE [Suspect]
     Active Substance: TESTOSTERONE
     Indication: Hormone therapy
     Dosage: 300 MILLIGRAM, MONTHLY
     Route: 030

REACTIONS (2)
  - Pancreatitis necrotising [Unknown]
  - Idiopathic pancreatitis [Unknown]
